FAERS Safety Report 18576149 (Version 4)
Quarter: 2020Q4

REPORT INFORMATION
  Report Type: Spontaneous
  Country: US (occurrence: US)
  Receive Date: 20201203
  Receipt Date: 20201223
  Transmission Date: 20210114
  Serious: Yes (Hospitalization, Other)
  Sender: FDA-Public Use
  Company Number: US-ALLERGAN-2046807US

PATIENT
  Sex: Male
  Weight: 97.5 kg

DRUGS (2)
  1. HYDROCHLOROTHIAZIDE UNK [Suspect]
     Active Substance: HYDROCHLOROTHIAZIDE
     Indication: HYPERTENSION
     Dosage: 25 MG, QD
     Route: 065
     Dates: start: 202004, end: 20200505
  2. HYDROXYZINE [Suspect]
     Active Substance: HYDROXYZINE HYDROCHLORIDE
     Indication: ANXIETY
     Dosage: 25 MG, Q8HR
     Dates: start: 202004

REACTIONS (3)
  - Ventricular tachycardia [Recovered/Resolved]
  - Hypokalaemia [Recovered/Resolved]
  - Long QT syndrome [Recovered/Resolved]

NARRATIVE: CASE EVENT DATE: 20200505
